FAERS Safety Report 24378830 (Version 1)
Quarter: 2024Q3

REPORT INFORMATION
  Report Type: Spontaneous
  Country: US (occurrence: None)
  Receive Date: 20240928
  Receipt Date: 20240928
  Transmission Date: 20241016
  Serious: Yes (Hospitalization)
  Sender: Public
  Company Number: None

PATIENT
  Sex: Male
  Weight: 76.4 kg

DRUGS (1)
  1. CISPLATIN [Suspect]
     Active Substance: CISPLATIN
     Dates: end: 20240903

REACTIONS (5)
  - Sepsis [None]
  - Febrile neutropenia [None]
  - Odynophagia [None]
  - Dysphagia [None]
  - Stomatitis [None]

NARRATIVE: CASE EVENT DATE: 20240920
